FAERS Safety Report 18260648 (Version 2)
Quarter: 2020Q4

REPORT INFORMATION
  Report Type: Spontaneous
  Country: US (occurrence: US)
  Receive Date: 20200914
  Receipt Date: 20201019
  Transmission Date: 20210113
  Serious: No
  Sender: FDA-Public Use
  Company Number: US-ASTRAZENECA-2020SF15184

PATIENT
  Age: 82 Year
  Sex: Male

DRUGS (1)
  1. BEVESPI AEROSPHERE [Suspect]
     Active Substance: FORMOTEROL FUMARATE\GLYCOPYRROLATE
     Indication: CHRONIC OBSTRUCTIVE PULMONARY DISEASE
     Dosage: 9/4.8 UG, TWO PUFFS TWICE DAILY
     Route: 055

REACTIONS (4)
  - Device issue [Unknown]
  - Product taste abnormal [Unknown]
  - Wrong technique in device usage process [Unknown]
  - Dyspnoea [Unknown]
